FAERS Safety Report 8908167 (Version 15)
Quarter: 2015Q3

REPORT INFORMATION
  Report Type: Report from Study
  Country: JP (occurrence: JP)
  Receive Date: 20121113
  Receipt Date: 20150717
  Transmission Date: 20151125
  Serious: Yes (Hospitalization)
  Sender: FDA-Public Use
  Company Number: PHHY2012JP103845

PATIENT
  Age: 59 Year
  Sex: Male

DRUGS (27)
  1. NEORAL [Interacting]
     Active Substance: CYCLOSPORINE
     Indication: RENAL TRANSPLANT
     Dosage: 440 MG, QD
     Route: 048
     Dates: start: 20110324, end: 20110328
  2. NEORAL [Interacting]
     Active Substance: CYCLOSPORINE
     Indication: IMMUNOSUPPRESSION
     Dosage: 220 MG, QD
     Route: 048
     Dates: start: 20110329, end: 20110329
  3. NEORAL [Interacting]
     Active Substance: CYCLOSPORINE
     Dosage: 175 MG, QD
     Route: 048
     Dates: start: 20110415, end: 20110418
  4. NEORAL [Interacting]
     Active Substance: CYCLOSPORINE
     Dosage: 125 MG, UNK
     Route: 048
     Dates: start: 20111130
  5. CELLCEPT [Suspect]
     Active Substance: MYCOPHENOLATE MOFETIL\MYCOPHENOLATE MOFETIL HYDROCHLORIDE
     Dosage: 750 MG, QD
     Route: 048
     Dates: start: 20110329, end: 20110329
  6. CELLCEPT [Suspect]
     Active Substance: MYCOPHENOLATE MOFETIL\MYCOPHENOLATE MOFETIL HYDROCHLORIDE
     Dosage: 1000 MG, QD
     Route: 048
     Dates: start: 20110929
  7. SIMULECT [Concomitant]
     Active Substance: BASILIXIMAB
     Indication: RENAL TRANSPLANT
     Dosage: 20 MG, UNK
     Route: 042
     Dates: start: 20110329, end: 20110402
  8. NEORAL [Interacting]
     Active Substance: CYCLOSPORINE
     Dosage: 240 MG, QD
     Route: 048
     Dates: start: 20110419, end: 20110511
  9. NEORAL [Interacting]
     Active Substance: CYCLOSPORINE
     Dosage: 50 MG, QD
     Route: 065
     Dates: start: 20111122, end: 20111123
  10. NEORAL [Interacting]
     Active Substance: CYCLOSPORINE
     Dosage: 80 MG
     Route: 065
     Dates: start: 20111125, end: 20111129
  11. NEORAL [Interacting]
     Active Substance: CYCLOSPORINE
     Dosage: 100 MG, QD
     Route: 048
  12. CELLCEPT [Suspect]
     Active Substance: MYCOPHENOLATE MOFETIL\MYCOPHENOLATE MOFETIL HYDROCHLORIDE
     Indication: RENAL TRANSPLANT
     Dosage: 1500 MG, QD
     Route: 048
     Dates: start: 20110315, end: 20110328
  13. CELLCEPT [Suspect]
     Active Substance: MYCOPHENOLATE MOFETIL\MYCOPHENOLATE MOFETIL HYDROCHLORIDE
     Dosage: 3000 MG, UNK
     Route: 048
     Dates: start: 20110331, end: 20110412
  14. NEORAL [Interacting]
     Active Substance: CYCLOSPORINE
     Dosage: 300 MG, QD
     Route: 048
     Dates: start: 20110404, end: 20110408
  15. CELLCEPT [Suspect]
     Active Substance: MYCOPHENOLATE MOFETIL\MYCOPHENOLATE MOFETIL HYDROCHLORIDE
     Dosage: 1500 MG, QD
     Route: 048
     Dates: start: 20110330, end: 20110330
  16. RITUXIMAB [Concomitant]
     Active Substance: RITUXIMAB
     Indication: RENAL TRANSPLANT
     Route: 065
  17. GLIVEC [Interacting]
     Active Substance: IMATINIB MESYLATE
     Indication: GASTROINTESTINAL STROMAL TUMOUR
     Dosage: 400 MG, QD
     Route: 048
     Dates: start: 20121025, end: 20121107
  18. NEORAL [Interacting]
     Active Substance: CYCLOSPORINE
     Dosage: 440 MG, QD
     Route: 048
     Dates: start: 20110330, end: 20110403
  19. NEORAL [Interacting]
     Active Substance: CYCLOSPORINE
     Dosage: 150 MG, QD
     Route: 048
     Dates: start: 20110811, end: 20110928
  20. PREDNISOLONE. [Suspect]
     Active Substance: PREDNISOLONE
     Indication: RENAL TRANSPLANT
     Dosage: 10 MG, QD
     Route: 048
     Dates: start: 20110315, end: 20110328
  21. NEORAL [Interacting]
     Active Substance: CYCLOSPORINE
     Dosage: 65 MG, UNK
     Route: 048
  22. CELLCEPT [Suspect]
     Active Substance: MYCOPHENOLATE MOFETIL\MYCOPHENOLATE MOFETIL HYDROCHLORIDE
     Dosage: 2000 MG, QD
     Route: 048
     Dates: start: 20110413, end: 20110427
  23. CELLCEPT [Suspect]
     Active Substance: MYCOPHENOLATE MOFETIL\MYCOPHENOLATE MOFETIL HYDROCHLORIDE
     Dosage: 1000 MG, QD
     Route: 048
     Dates: start: 20110428
  24. SANDIMMUN [Concomitant]
     Active Substance: CYCLOSPORINE
     Indication: PRODUCT USED FOR UNKNOWN INDICATION
     Dosage: 50 MG
     Route: 041
     Dates: start: 20111122, end: 20111129
  25. NEORAL [Interacting]
     Active Substance: CYCLOSPORINE
     Dosage: 200 MG, QD
     Route: 048
     Dates: start: 20110409, end: 20110414
  26. NEORAL [Interacting]
     Active Substance: CYCLOSPORINE
     Dosage: 175 MG, QD
     Route: 048
     Dates: start: 20110512, end: 20110810
  27. NEORAL [Interacting]
     Active Substance: CYCLOSPORINE
     Dosage: 125 MG, QD
     Route: 048
     Dates: start: 20110929, end: 20111121

REACTIONS (8)
  - Gastrointestinal stromal tumour [Recovering/Resolving]
  - Hyponatraemia [Not Recovered/Not Resolved]
  - Renal impairment [Recovering/Resolving]
  - Diarrhoea [Unknown]
  - Hepatic cancer metastatic [Recovering/Resolving]
  - Complications of transplanted kidney [Recovered/Resolved]
  - Immunosuppressant drug level increased [Recovered/Resolved]
  - Drug interaction [Unknown]

NARRATIVE: CASE EVENT DATE: 20121107
